FAERS Safety Report 12766056 (Version 1)
Quarter: 2016Q3

REPORT INFORMATION
  Report Type: Spontaneous
  Country: US (occurrence: US)
  Receive Date: 20160920
  Receipt Date: 20160920
  Transmission Date: 20161109
  Serious: Yes (Other)
  Sender: FDA-Public Use
  Company Number: None

PATIENT
  Age: 65 Year
  Sex: Female
  Weight: 53.55 kg

DRUGS (2)
  1. IMITREX [Concomitant]
     Active Substance: SUMATRIPTAN SUCCINATE
  2. TROKENDI XR [Suspect]
     Active Substance: TOPIRAMATE
     Indication: MIGRAINE
     Route: 048
     Dates: start: 20160825, end: 20160919

REACTIONS (9)
  - Depression [None]
  - Mood swings [None]
  - Gastric disorder [None]
  - Diarrhoea [None]
  - Thinking abnormal [None]
  - Lethargy [None]
  - Tremor [None]
  - Panic attack [None]
  - Decreased appetite [None]

NARRATIVE: CASE EVENT DATE: 20160914
